FAERS Safety Report 5737468-4 (Version None)
Quarter: 2008Q2

REPORT INFORMATION
  Report Type: 
  Country: None (occurrence: None)
  Receive Date: 20080507
  Receipt Date: 20080318
  Transmission Date: 20081010
  Serious: Yes (Other)
  Sender: FDA-Public Use
  Company Number: 46359

PATIENT
  Age: 78 Year
  Sex: Male
  Weight: 87.0906 kg

DRUGS (1)
  1. DIPYRIDAMOLE [Suspect]
     Indication: CORONARY ARTERY DISEASE
     Dosage: 492MG IV
     Route: 042
     Dates: start: 20080312

REACTIONS (1)
  - DRUG INEFFECTIVE [None]
